FAERS Safety Report 10513765 (Version 1)
Quarter: 2014Q4

REPORT INFORMATION
  Report Type: Spontaneous
  Country: US (occurrence: US)
  Receive Date: 20141013
  Receipt Date: 20141013
  Transmission Date: 20150528
  Serious: No
  Sender: FDA-Public Use
  Company Number: US-BAUSCH-SYM-2014-18913

PATIENT
  Sex: Female

DRUGS (1)
  1. METRONIDAZOLE VAGINAL GEL [Suspect]
     Active Substance: METRONIDAZOLE
     Indication: PRODUCT USED FOR UNKNOWN INDICATION
     Route: 067

REACTIONS (3)
  - Dysgeusia [Unknown]
  - Dry mouth [Unknown]
  - Application site pain [Unknown]

NARRATIVE: CASE EVENT DATE: 20140317
